FAERS Safety Report 6065681-8 (Version None)
Quarter: 2009Q1

REPORT INFORMATION
  Report Type: 
  Country: None (occurrence: None)
  Receive Date: 20090130
  Receipt Date: 20090114
  Transmission Date: 20090719
  Serious: Yes (Other)
  Sender: FDA-Public Use
  Company Number: 8041547

PATIENT
  Age: 53 Year
  Sex: Female

DRUGS (3)
  1. KEPPRA [Suspect]
     Indication: TEMPORAL LOBE EPILEPSY
     Dosage: NI PO
     Route: 048
     Dates: start: 20080101, end: 20080101
  2. DEPAKENE [Concomitant]
  3. EPITOMAX [Concomitant]

REACTIONS (2)
  - ABNORMAL BEHAVIOUR [None]
  - SOMATIC DELUSION [None]
